FAERS Safety Report 16573767 (Version 2)
Quarter: 2019Q3

REPORT INFORMATION
  Report Type: Spontaneous
  Country: DE (occurrence: DE)
  Receive Date: 20190715
  Receipt Date: 20190723
  Transmission Date: 20191004
  Serious: Yes (Other)
  Sender: FDA-Public Use
  Company Number: DE-MYLANLABS-2019M1065786

PATIENT
  Age: 48 Year
  Sex: Female
  Weight: 55 kg

DRUGS (5)
  1. PROGESTERON [Concomitant]
     Active Substance: PROGESTERONE
     Indication: HORMONE THERAPY
     Dosage: UNK
     Dates: start: 201901
  2. OESTROGEN [Concomitant]
     Indication: HORMONE THERAPY
     Dosage: UNK
  3. SUMATRIPTAN DURA 100 MG FILMTABLETTEN [Suspect]
     Active Substance: SUMATRIPTAN
     Indication: MIGRAINE
     Dosage: 100 MILLIGRAM, QD
     Route: 048
     Dates: start: 20190707
  4. TESTOSTERON                        /00103101/ [Concomitant]
     Active Substance: TESTOSTERONE
     Indication: HORMONE THERAPY
     Dosage: UNK
     Dates: start: 201901
  5. SUMATRIPTAN DURA 100 MG FILMTABLETTEN [Suspect]
     Active Substance: SUMATRIPTAN
     Dosage: 100 MILLIGRAM, QD
     Route: 048
     Dates: start: 20180708

REACTIONS (2)
  - Tachycardia [Recovering/Resolving]
  - Circulatory collapse [Recovering/Resolving]

NARRATIVE: CASE EVENT DATE: 2019
